FAERS Safety Report 8533892-5 (Version None)
Quarter: 2012Q3

REPORT INFORMATION
  Report Type: 
  Country: None (occurrence: None)
  Receive Date: 20120724
  Receipt Date: 20120713
  Transmission Date: 20120928
  Serious: Yes (Other)
  Sender: FDA-Public Use
  Company Number: NZ-JNJFOC-20120707231

PATIENT
  Sex: Female
  Weight: 56 kg

DRUGS (2)
  1. STELARA [Suspect]
     Indication: PSORIASIS
     Route: 058
     Dates: start: 20120524
  2. STELARA [Suspect]
     Route: 058
     Dates: start: 20120621

REACTIONS (1)
  - BRONCHITIS [None]
